FAERS Safety Report 5055855-7 (Version None)
Quarter: 2006Q3

REPORT INFORMATION
  Report Type: 
  Country: None (occurrence: None)
  Receive Date: 20060718
  Receipt Date: 20060718
  Transmission Date: 20061208
  Serious: Yes (Hospitalization)
  Sender: FDA-Public Use
  Company Number: None

PATIENT
  Age: 75 Year
  Sex: Male
  Weight: 83.5 kg

DRUGS (2)
  1. LEVOFLOXACIN [Suspect]
     Indication: RESPIRATORY TRACT INFECTION
     Dosage: 500 MG QD PO
     Route: 048
  2. WARFARIN SODIUM [Suspect]
     Indication: ATRIAL FIBRILLATION
     Dosage: 5 MG QD PO [SEVERAL YEARS]
     Route: 048

REACTIONS (6)
  - CLOSTRIDIUM DIFFICILE COLITIS [None]
  - INTERNATIONAL NORMALISED RATIO INCREASED [None]
  - NAUSEA [None]
  - PNEUMONIA [None]
  - STAPHYLOCOCCAL INFECTION [None]
  - VOMITING [None]
